FAERS Safety Report 8967207 (Version 2)
Quarter: 2013Q1

REPORT INFORMATION
  Report Type: Spontaneous
  Country: US (occurrence: US)
  Receive Date: 20121217
  Receipt Date: 20130311
  Transmission Date: 20140127
  Serious: Yes (Hospitalization, Other)
  Sender: FDA-Public Use
  Company Number: US-ELI_LILLY_AND_COMPANY-US201212002199

PATIENT
  Sex: Female

DRUGS (21)
  1. HUMALOG 25% LISPRO, 75% NPL [Suspect]
     Indication: DIABETES MELLITUS
     Dosage: 120 U, QD
  2. PREDNISONE [Concomitant]
  3. ALBUTEROL [Concomitant]
     Route: 055
  4. ESTROGEN [Concomitant]
  5. PROGESTERONE [Concomitant]
  6. GLIMEPIRIDE [Concomitant]
  7. METFORMIN [Concomitant]
  8. LYRICA [Concomitant]
  9. LANOXIM [Concomitant]
  10. CARTIA XT [Concomitant]
  11. CRESTOR [Concomitant]
  12. PLAVIX [Concomitant]
  13. ASPIRIN [Concomitant]
  14. SINGULAIR [Concomitant]
  15. ALLEGRA [Concomitant]
  16. LASIX                                   /USA/ [Concomitant]
  17. DIAMOX                             /00016901/ [Concomitant]
  18. HYDROCODONE [Concomitant]
  19. NEXIUM                                  /USA/ [Concomitant]
  20. FENTANYL [Concomitant]
     Route: 062
  21. OXYGEN [Concomitant]
     Indication: CHRONIC OBSTRUCTIVE PULMONARY DISEASE
     Dosage: UNK

REACTIONS (9)
  - Invasive ductal breast carcinoma [Recovered/Resolved]
  - Hip fracture [Unknown]
  - Fall [Recovered/Resolved]
  - Pneumonia [Unknown]
  - Blood glucose increased [Unknown]
  - Drug ineffective [Unknown]
  - Blood glucose increased [Unknown]
  - Incorrect storage of drug [Unknown]
  - Inappropriate schedule of drug administration [Recovered/Resolved]
